FAERS Safety Report 6124741-3 (Version None)
Quarter: 2009Q1

REPORT INFORMATION
  Report Type: 
  Country: None (occurrence: None)
  Receive Date: 20090319
  Receipt Date: 20090312
  Transmission Date: 20090719
  Serious: Yes (Hospitalization)
  Sender: FDA-Public Use
  Company Number: US-KINGPHARMUSA00001-K200900281

PATIENT
  Age: 72 Year
  Sex: Female

DRUGS (14)
  1. ALTACE [Suspect]
     Dosage: 10 MG, QD
     Route: 048
  2. NEXIAM                             /01479301/ [Suspect]
     Dosage: 20 MG, QD
     Route: 048
     Dates: end: 20080417
  3. REMERGIL [Suspect]
     Dosage: 15 MG, QD
     Route: 048
     Dates: start: 20080210, end: 20080419
  4. TREVILOR [Suspect]
     Dosage: 75 MG, QD
     Route: 048
     Dates: start: 20080308, end: 20080310
  5. TREVILOR [Suspect]
     Dosage: 150 MG, QD
     Route: 048
     Dates: start: 20080311, end: 20080417
  6. DIOVAN                             /01319601/ [Concomitant]
     Route: 048
  7. SORTIS                             /01326101/ [Concomitant]
     Dosage: UNK
     Route: 048
     Dates: end: 20080417
  8. NEBILET [Concomitant]
     Dosage: UNK
     Route: 048
     Dates: end: 20080417
  9. COTRIM FORTE EU RHO [Concomitant]
     Dosage: 2 DF, QD
     Route: 048
     Dates: start: 20080411, end: 20080417
  10. ASPIRIN [Concomitant]
     Dosage: UNK
     Route: 048
     Dates: end: 20080417
  11. ZOPICLONE [Concomitant]
     Dosage: UNK
     Route: 048
     Dates: start: 20080306, end: 20080311
  12. ZOPICLONE [Concomitant]
     Dosage: 3.75 MG, UNK
     Route: 048
     Dates: start: 20080312
  13. LORAZEPAM [Concomitant]
     Dosage: 2 MG, UNK
     Dates: start: 20080306, end: 20080401
  14. LORAZEPAM [Concomitant]
     Dosage: 1-5 MG
     Route: 048
     Dates: start: 20080402, end: 20080410

REACTIONS (2)
  - HYPONATRAEMIA [None]
  - PSYCHIATRIC SYMPTOM [None]
